FAERS Safety Report 23714590 (Version 1)
Quarter: 2024Q2

REPORT INFORMATION
  Report Type: Spontaneous
  Country: GB (occurrence: GB)
  Receive Date: 20240406
  Receipt Date: 20240406
  Transmission Date: 20240716
  Serious: Yes (Other)
  Sender: FDA-Public Use
  Company Number: None

PATIENT
  Age: 78 Year
  Sex: Female
  Weight: 78 kg

DRUGS (11)
  1. TICAGRELOR [Suspect]
     Active Substance: TICAGRELOR
     Route: 065
     Dates: start: 20240209
  2. AMLODIPINE [Concomitant]
     Active Substance: AMLODIPINE BESYLATE
     Dates: start: 20240209
  3. ASPIRIN [Concomitant]
     Active Substance: ASPIRIN
     Dates: start: 20231107
  4. KETOCONAZOLE [Concomitant]
     Active Substance: KETOCONAZOLE
     Dosage: APPLY TO THE AFFECTED AREAS TWICE A WEEK FOR 4,
     Dates: start: 20231107, end: 20240209
  5. ACETAMINOPHEN [Concomitant]
     Active Substance: ACETAMINOPHEN
     Dosage: TIME INTERVAL: AS NECESSARY: 2 QDS PRN
     Dates: start: 20231107
  6. PERINDOPRIL ERBUMINE [Concomitant]
     Active Substance: PERINDOPRIL ERBUMINE
     Dates: start: 20231107
  7. VICTOZA [Concomitant]
     Active Substance: LIRAGLUTIDE
     Dates: start: 20231107
  8. NITROGLYCERIN [Concomitant]
     Active Substance: NITROGLYCERIN
     Dosage: ONE PUFF TO BE SPRAYED UNDER THE TONGUE WHEN NE...
     Route: 060
     Dates: start: 20240209
  9. LANSOPRAZOLE [Concomitant]
     Active Substance: LANSOPRAZOLE
     Dates: start: 20231107
  10. BISOPROLOL [Concomitant]
     Active Substance: BISOPROLOL\BISOPROLOL FUMARATE
     Dates: start: 20231107
  11. HUMULIN L [Concomitant]
     Active Substance: INSULIN HUMAN
     Dosage: TAKE 10 UNITS IN THE MORNING AND 8 UNITS IN EVE...
     Dates: start: 20231107

REACTIONS (1)
  - Eye haemorrhage [Recovered/Resolved]

NARRATIVE: CASE EVENT DATE: 20240311
